FAERS Safety Report 20422479 (Version 2)
Quarter: 2023Q1

REPORT INFORMATION
  Report Type: Spontaneous
  Country: GB (occurrence: GB)
  Receive Date: 20220203
  Receipt Date: 20230301
  Transmission Date: 20230417
  Serious: Yes (Life-Threatening, Hospitalization, Disabling, Other)
  Sender: FDA-Public Use
  Company Number: None

PATIENT
  Age: 68 Year
  Sex: Female
  Weight: 68.94 kg

DRUGS (3)
  1. CIPROFLOXACIN [Suspect]
     Active Substance: CIPROFLOXACIN
     Indication: Bowel preparation
     Dosage: UNK
     Route: 048
     Dates: start: 20211123, end: 20211124
  2. SODIUM ACID PHOSPHATE [PHOSPHORIC ACID SODIUM] [Concomitant]
     Indication: Ill-defined disorder
  3. ACETAMINOPHEN [Concomitant]
     Active Substance: ACETAMINOPHEN
     Indication: Ill-defined disorder

REACTIONS (34)
  - Drug hypersensitivity [Not Recovered/Not Resolved]
  - Amnesia [Not Recovered/Not Resolved]
  - Anaphylactic shock [Not Recovered/Not Resolved]
  - Back pain [Not Recovered/Not Resolved]
  - Bedridden [Unknown]
  - Dyspnoea [Unknown]
  - Confusional state [Not Recovered/Not Resolved]
  - Diarrhoea [Recovered/Resolved]
  - Diplopia [Not Recovered/Not Resolved]
  - Fatigue [Not Recovered/Not Resolved]
  - Palpitations [Not Recovered/Not Resolved]
  - Dizziness [Unknown]
  - Migraine [Not Recovered/Not Resolved]
  - Hypoaesthesia [Not Recovered/Not Resolved]
  - Seizure [Not Recovered/Not Resolved]
  - Arthralgia [Unknown]
  - Paraesthesia [Not Recovered/Not Resolved]
  - Vision blurred [Not Recovered/Not Resolved]
  - Headache [Not Recovered/Not Resolved]
  - Asthenia [Unknown]
  - Pain [Unknown]
  - Hypersomnia [Unknown]
  - Eye haemorrhage [Recovered/Resolved]
  - Anxiety [Not Recovered/Not Resolved]
  - Depressed mood [Unknown]
  - Post-traumatic stress disorder [Unknown]
  - Nightmare [Not Recovered/Not Resolved]
  - Balance disorder [Unknown]
  - Inappropriate antidiuretic hormone secretion [Unknown]
  - Memory impairment [Unknown]
  - Nausea [Recovering/Resolving]
  - Bursitis [Unknown]
  - Chest pain [Unknown]
  - Spinal pain [Unknown]

NARRATIVE: CASE EVENT DATE: 20211123
